FAERS Safety Report 9151346 (Version 2)
Quarter: 2013Q2

REPORT INFORMATION
  Report Type: Spontaneous
  Country: US (occurrence: US)
  Receive Date: 20130308
  Receipt Date: 20130610
  Transmission Date: 20140414
  Serious: Yes (Other)
  Sender: FDA-Public Use
  Company Number: US-ASTELLAS-2013US001848

PATIENT
  Age: 67 Year
  Sex: Male

DRUGS (1)
  1. XTANDI [Suspect]
     Indication: PROSTATE CANCER
     Dosage: UNK
     Route: 065
     Dates: start: 201211

REACTIONS (4)
  - Drug ineffective [Unknown]
  - Fall [Not Recovered/Not Resolved]
  - Lower limb fracture [Recovered/Resolved]
  - Prostatic specific antigen increased [Not Recovered/Not Resolved]
